FAERS Safety Report 4430289-4 (Version None)
Quarter: 2004Q3

REPORT INFORMATION
  Report Type: 
  Country: None (occurrence: None)
  Receive Date: 20040817
  Receipt Date: 20040802
  Transmission Date: 20050211
  Serious: Yes (Death, Disabling, Other)
  Sender: FDA-Public Use
  Company Number: 2004IC000588

PATIENT
  Age: 80 Year
  Sex: Female

DRUGS (2)
  1. FLUOROURACIL [Suspect]
     Indication: GASTRIC CANCER
     Dosage: 500 MG; INTRAVENOUS
     Route: 042
     Dates: start: 20030908, end: 20031006
  2. LEUCOVORIN CALCIUM [Suspect]
     Indication: GASTRIC CANCER
     Dosage: 250 MG; INTRAVENOUS
     Route: 042
     Dates: start: 20030908, end: 20031006

REACTIONS (6)
  - BRADYCARDIA [None]
  - CARDIAC PACEMAKER MALFUNCTION [None]
  - CARDIOMYOPATHY [None]
  - GENERAL PHYSICAL HEALTH DETERIORATION [None]
  - PERITONITIS [None]
  - VERTIGO [None]
